FAERS Safety Report 23458892 (Version 2)
Quarter: 2024Q1

REPORT INFORMATION
  Report Type: Report from Study
  Country: US (occurrence: US)
  Receive Date: 20240131
  Receipt Date: 20240207
  Transmission Date: 20240410
  Serious: Yes (Hospitalization, Other)
  Sender: FDA-Public Use
  Company Number: US-ABBVIE-5605353

PATIENT
  Sex: Female

DRUGS (1)
  1. SKYRIZI [Suspect]
     Active Substance: RISANKIZUMAB-RZAA
     Indication: Psoriasis
     Route: 058

REACTIONS (8)
  - Hepatic cirrhosis [Unknown]
  - Infection [Unknown]
  - Intra-abdominal fluid collection [Unknown]
  - Diabetes mellitus [Unknown]
  - Splenic thrombosis [Unknown]
  - Hospitalisation [Unknown]
  - Brain fog [Unknown]
  - Thrombosis [Unknown]
